FAERS Safety Report 17624609 (Version 2)
Quarter: 2020Q2

REPORT INFORMATION
  Report Type: Spontaneous
  Country: BR (occurrence: BR)
  Receive Date: 20200403
  Receipt Date: 20200514
  Transmission Date: 20200713
  Serious: Yes (Other)
  Sender: FDA-Public Use
  Company Number: BR-PFIZER INC-2020133213

PATIENT
  Age: 59 Year
  Sex: Female
  Weight: 80 kg

DRUGS (1)
  1. GENOTROPIN [Suspect]
     Active Substance: SOMATROPIN
     Indication: FAT TISSUE INCREASED
     Dosage: 0.5 MG, DAILY
     Dates: start: 20200212

REACTIONS (6)
  - Product use in unapproved indication [Unknown]
  - Poor quality device used [Not Recovered/Not Resolved]
  - Urinary tract infection [Recovered/Resolved]
  - Wrong technique in device usage process [Recovered/Resolved]
  - Device issue [Not Recovered/Not Resolved]
  - Off label use [Unknown]

NARRATIVE: CASE EVENT DATE: 202002
